FAERS Safety Report 9234640 (Version 9)
Quarter: 2013Q3

REPORT INFORMATION
  Report Type: Spontaneous
  Country: US (occurrence: US)
  Receive Date: 20130416
  Receipt Date: 20130909
  Transmission Date: 20140515
  Serious: No
  Sender: FDA-Public Use
  Company Number: US-PFIZER INC-2013115536

PATIENT
  Age: 77 Year
  Sex: Female
  Weight: 78.91 kg

DRUGS (17)
  1. SUTENT [Suspect]
     Indication: METASTATIC RENAL CELL CARCINOMA
     Dosage: 37.5 MG, 1X/DAY (GIVEN AS THREE 12.5MG CAPSULES) WITH 3 WEEKS ON, 1 WEEK OFF REGIMEN
     Dates: start: 20130401, end: 20130412
  2. SUTENT [Suspect]
     Dosage: 25 MG, 3X/DAY
  3. SUTENT [Suspect]
     Dosage: 25 MG DAILY FOR 2 WEEKS ON FOLLOWED BY ONE WK OFF
     Dates: start: 20130610
  4. SUTENT [Suspect]
     Dosage: 12.5 MG, CYCLIC (12.5MG A DAY FOR 2 WEEKS ON FOLLOWED BY ONE WK OFF)
     Dates: start: 20130622, end: 20130801
  5. LABETALOL [Suspect]
     Indication: HYPERTENSION
     Dosage: 200 MG, AT 7AM DAILY
  6. LABETALOL [Suspect]
     Dosage: 100MG (200MG 1/2 TABLET), AT 3PM DAILY
  7. LABETALOL [Suspect]
     Dosage: 200 MG, AT 9PM NIGHTLY
     Route: 048
  8. NIFEDIPINE XL [Concomitant]
     Indication: HYPERTENSION
     Dosage: 30 MG, 1X/DAY (DAILY)
     Route: 048
  9. PROBIOTIC [Concomitant]
     Dosage: UNK, 1X/DAY (DAILY)
     Route: 048
  10. GABAPENTIN [Concomitant]
     Dosage: UNK
  11. CALCIUM [Concomitant]
     Dosage: UNK, EVERY 2 WEEKS
     Route: 051
  12. ARNICARE [Concomitant]
     Indication: PAIN
     Dosage: UNK
  13. BIOTENE [Concomitant]
     Dosage: UNK
  14. IMODIUM [Concomitant]
     Dosage: UNK, AS NEEDED (PRN)
  15. ACETAMINOPHEN [Concomitant]
     Dosage: UNK, AS NEEDED (PRN)
  16. AYR GEL [Concomitant]
     Dosage: UNK, 1X/DAY (EVERY NIGHT)
     Route: 045
  17. SALINE NASAL RINSE [Concomitant]
     Dosage: UNK
     Route: 045

REACTIONS (27)
  - Pain in extremity [Unknown]
  - Musculoskeletal pain [Not Recovered/Not Resolved]
  - Movement disorder [Unknown]
  - Dry mouth [Unknown]
  - Gingival disorder [Unknown]
  - Diarrhoea [Unknown]
  - Fatigue [Unknown]
  - Confusional state [Unknown]
  - Disturbance in attention [Recovered/Resolved]
  - Flatulence [Not Recovered/Not Resolved]
  - Muscular weakness [Recovered/Resolved]
  - Gait disturbance [Recovered/Resolved]
  - Blister [Unknown]
  - Blood pressure increased [Unknown]
  - Balance disorder [Unknown]
  - Fall [Unknown]
  - Buccal mucosal roughening [Unknown]
  - Epistaxis [Recovered/Resolved]
  - Sinusitis [Unknown]
  - Skin discolouration [Unknown]
  - Dysgeusia [Unknown]
  - Oral pain [Unknown]
  - Abdominal distension [Unknown]
  - Stress [Unknown]
  - Pain of skin [Unknown]
  - Disease progression [Unknown]
  - Metastatic renal cell carcinoma [Unknown]
